FAERS Safety Report 8476051-7 (Version None)
Quarter: 2012Q2

REPORT INFORMATION
  Report Type: 
  Country: None (occurrence: None)
  Receive Date: 20120628
  Receipt Date: 20120614
  Transmission Date: 20120825
  Serious: No
  Sender: FDA-Public Use
  Company Number: US-ASTRAZENECA-2007UW13972

PATIENT
  Age: 50 Year
  Sex: Male
  Weight: 127 kg

DRUGS (4)
  1. NEXIUM [Suspect]
     Route: 048
  2. OMEPRAZOLE [Suspect]
     Route: 048
  3. THYROID TAB [Concomitant]
  4. NEXIUM [Suspect]
     Indication: GASTROOESOPHAGEAL REFLUX DISEASE
     Route: 048

REACTIONS (7)
  - ERYTHEMA [None]
  - GASTROINTESTINAL SOUNDS ABNORMAL [None]
  - PRURITUS [None]
  - ERUCTATION [None]
  - NAUSEA [None]
  - ABDOMINAL DISCOMFORT [None]
  - HYPERHIDROSIS [None]
